FAERS Safety Report 11926434 (Version 2)
Quarter: 2016Q1

REPORT INFORMATION
  Report Type: Report from Study
  Country: GB (occurrence: GB)
  Receive Date: 20160119
  Receipt Date: 20160210
  Transmission Date: 20160526
  Serious: Yes (Hospitalization, Other)
  Sender: FDA-Public Use
  Company Number: PHFR2016GB000785

PATIENT
  Sex: Female
  Weight: 30.8 kg

DRUGS (1)
  1. ILARIS [Suspect]
     Active Substance: CANAKINUMAB
     Indication: CRYOPYRIN ASSOCIATED PERIODIC SYNDROME
     Dosage: UNK
     Route: 058
     Dates: start: 20150925

REACTIONS (5)
  - Cryopyrin associated periodic syndrome [Recovered/Resolved]
  - Upper respiratory tract infection [Recovered/Resolved]
  - Cough [Unknown]
  - Condition aggravated [Recovered/Resolved]
  - Nasopharyngitis [Unknown]

NARRATIVE: CASE EVENT DATE: 20151113
